FAERS Safety Report 7118820-1 (Version None)
Quarter: 2010Q4

REPORT INFORMATION
  Report Type: 
  Country: None (occurrence: None)
  Receive Date: 20101123
  Receipt Date: 20100916
  Transmission Date: 20110411
  Serious: No
  Sender: FDA-Public Use
  Company Number: US-KINGPHARMUSA00001-K201001158

PATIENT
  Age: 73 Year
  Sex: Male
  Weight: 70.295 kg

DRUGS (3)
  1. FLECTOR [Suspect]
     Indication: MUSCLE STRAIN
     Dosage: 1 PATCH, EVERY 12 HOURS
     Route: 061
     Dates: start: 20100913
  2. PROTONIX [Concomitant]
     Indication: REFLUX OESOPHAGITIS
  3. VITAMINS [Concomitant]

REACTIONS (1)
  - DRUG EFFECT DECREASED [None]
